FAERS Safety Report 5234527-X (Version None)
Quarter: 2007Q1

REPORT INFORMATION
  Report Type: 
  Country: None (occurrence: None)
  Receive Date: 20070209
  Receipt Date: 20070201
  Transmission Date: 20070707
  Serious: Yes (Hospitalization)
  Sender: FDA-Public Use
  Company Number: 2007UW02252

PATIENT
  Age: 51 Year
  Sex: Female

DRUGS (5)
  1. SEROQUEL [Suspect]
     Indication: THINKING ABNORMAL
     Dosage: HS
     Route: 048
  2. SEROQUEL [Suspect]
     Indication: HALLUCINATION
     Dosage: HS
     Route: 048
  3. PAXIL [Concomitant]
  4. DEPAKOTE [Concomitant]
  5. AMBIEN [Concomitant]
     Indication: INSOMNIA

REACTIONS (2)
  - NEUROLEPTIC MALIGNANT SYNDROME [None]
  - SEROTONIN SYNDROME [None]
